FAERS Safety Report 7272026-4 (Version None)
Quarter: 2011Q1

REPORT INFORMATION
  Report Type: 
  Country: None (occurrence: None)
  Receive Date: 20110127
  Receipt Date: 20110114
  Transmission Date: 20110831
  Serious: Yes (Hospitalization, Other)
  Sender: FDA-Public Use
  Company Number: APP201100051

PATIENT
  Age: 4 Year
  Sex: Male

DRUGS (2)
  1. ONDANSETRON INJECTION, USP (ONDANSETRON INJECTION, USP) (ONDANSETRON H [Suspect]
     Indication: VOMITING
     Dosage: (2 MG (0.13 MG/KG)) INTRAVENOUS
     Route: 042
  2. DEXTROSE 10% [Suspect]
     Indication: HYPOGLYCAEMIA
     Dosage: (7 ML/KG)

REACTIONS (3)
  - DYSTONIA [None]
  - GRAND MAL CONVULSION [None]
  - HYPOGLYCAEMIA [None]
